FAERS Safety Report 5510476-4 (Version None)
Quarter: 2007Q4

REPORT INFORMATION
  Report Type: 
  Country: None (occurrence: None)
  Receive Date: 20071108
  Receipt Date: 20071025
  Transmission Date: 20080405
  Serious: Yes (Other)
  Sender: FDA-Public Use
  Company Number: US-RANBAXY-2007RR-11094

PATIENT

DRUGS (3)
  1. LORATADINE [Suspect]
     Indication: HYPERSENSITIVITY
     Dosage: 10 MG, QD
  2. PREDNISOLONE [Concomitant]
  3. PREGABALIN [Concomitant]

REACTIONS (2)
  - HEPATITIS [None]
  - NEUROPATHY PERIPHERAL [None]
